FAERS Safety Report 14183274 (Version 1)
Quarter: 2017Q4

REPORT INFORMATION
  Report Type: Report from Study
  Country: US (occurrence: US)
  Receive Date: 20171113
  Receipt Date: 20171113
  Transmission Date: 20180321
  Serious: Yes (Hospitalization)
  Sender: FDA-Public Use
  Company Number: US-JNJFOC-20171113333

PATIENT
  Age: 34 Year
  Sex: Female

DRUGS (19)
  1. PROTONIX [Concomitant]
     Active Substance: PANTOPRAZOLE SODIUM
  2. BECLOMETHASONE [Concomitant]
     Active Substance: BECLOMETHASONE
  3. MICONAZOLE. [Concomitant]
     Active Substance: MICONAZOLE
  4. LORATADINE. [Concomitant]
     Active Substance: LORATADINE
  5. COLACE [Concomitant]
     Active Substance: DOCUSATE SODIUM
  6. ACYCLOVIR. [Concomitant]
     Active Substance: ACYCLOVIR
  7. ALBUTEROL. [Concomitant]
     Active Substance: ALBUTEROL
  8. MYCOPHENOLATE [Concomitant]
     Active Substance: MYCOPHENOLIC ACID
  9. ENOXAPARIN [Concomitant]
     Active Substance: ENOXAPARIN
  10. PREDNISONE. [Concomitant]
     Active Substance: PREDNISONE
  11. SENNA [Concomitant]
     Active Substance: SENNA LEAF\SENNOSIDES\SENNOSIDES A AND B
  12. CALCIUM [Concomitant]
     Active Substance: CALCIUM
  13. SINGULAIR [Concomitant]
     Active Substance: MONTELUKAST SODIUM
  14. ATIVAN [Concomitant]
     Active Substance: LORAZEPAM
  15. IMBRUVICA [Suspect]
     Active Substance: IBRUTINIB
     Indication: CHRONIC GRAFT VERSUS HOST DISEASE
     Route: 048
     Dates: start: 20170907, end: 2017
  16. ZOFRAN [Concomitant]
     Active Substance: ONDANSETRON HYDROCHLORIDE
  17. MORPHINE [Concomitant]
     Active Substance: MORPHINE
  18. BUSPAR [Concomitant]
     Active Substance: BUSPIRONE HYDROCHLORIDE
  19. ATENOLOL. [Concomitant]
     Active Substance: ATENOLOL

REACTIONS (1)
  - Haemorrhage [Not Recovered/Not Resolved]

NARRATIVE: CASE EVENT DATE: 201710
